FAERS Safety Report 6622142-2 (Version None)
Quarter: 2010Q1

REPORT INFORMATION
  Report Type: 
  Country: None (occurrence: None)
  Receive Date: 20100304
  Receipt Date: 20100219
  Transmission Date: 20100710
  Serious: Yes (Death, Hospitalization)
  Sender: FDA-Public Use
  Company Number: 2010022474

PATIENT
  Age: 57 Year
  Sex: Male
  Weight: 70 kg

DRUGS (7)
  1. FRAGMIN [Suspect]
     Dosage: SUBCUTANEOUS
     Route: 058
     Dates: start: 20091214
  2. MONOCORDIL (ISOSORBIDE MONONITRATE) [Concomitant]
  3. CARVEDILOL [Concomitant]
  4. SIMVASTATIN [Concomitant]
  5. SOMALGIN (ACETYLSALICYLIC ACID, ALUMINIUM GLYCINATE, MAGNESIUM CARBONA [Concomitant]
  6. ASPIRIN [Concomitant]
  7. DIPYRONE INJ [Concomitant]

REACTIONS (9)
  - BLOOD CREATININE INCREASED [None]
  - BLOOD UREA INCREASED [None]
  - CHOLECYSTITIS ACUTE [None]
  - DIARRHOEA [None]
  - DYSPNOEA [None]
  - ENTEROBACTER INFECTION [None]
  - PLATELET COUNT DECREASED [None]
  - SEPTIC SHOCK [None]
  - TONGUE DISCOLOURATION [None]
